FAERS Safety Report 17446985 (Version 2)
Quarter: 2020Q2

REPORT INFORMATION
  Report Type: Spontaneous
  Country: DE (occurrence: DE)
  Receive Date: 20200221
  Receipt Date: 20200414
  Transmission Date: 20200713
  Serious: Yes (Other)
  Sender: FDA-Public Use
  Company Number: DE-MYLANLABS-2020M1018723

PATIENT
  Sex: Male
  Weight: 100 kg

DRUGS (4)
  1. MIRTAZAPINE. [Concomitant]
     Active Substance: MIRTAZAPINE
     Indication: INSOMNIA
     Dosage: 45 MILLIGRAM, QD
     Route: 065
     Dates: start: 2011
  2. BISOPROLOL [Concomitant]
     Active Substance: BISOPROLOL
     Indication: HYPERTENSION
     Dosage: 7.5 MG, QD (SUSTAINED RELEASE)
     Route: 065
     Dates: start: 201901
  3. AMOXI                              /00249601/ [Interacting]
     Active Substance: AMOXICILLIN
     Indication: ANGINA PECTORIS
     Dosage: 1000 MG, QD
     Route: 065
     Dates: start: 201912, end: 201912
  4. FLUOXETINE [Suspect]
     Active Substance: FLUOXETINE HYDROCHLORIDE
     Indication: DEPRESSION
     Dosage: 40 MG, QD(SUSTAINED RELEASE)
     Route: 065
     Dates: start: 201911

REACTIONS (2)
  - Drug interaction [Recovered/Resolved]
  - Angina pectoris [Recovered/Resolved]

NARRATIVE: CASE EVENT DATE: 201912
